FAERS Safety Report 7544873-2 (Version None)
Quarter: 2011Q2

REPORT INFORMATION
  Report Type: 
  Country: None (occurrence: None)
  Receive Date: 20110614
  Receipt Date: 20091120
  Transmission Date: 20111010
  Serious: Yes (Other)
  Sender: FDA-Public Use
  Company Number: US-BAYER-200940976NA

PATIENT
  Age: 46 Year
  Sex: Female
  Weight: 91 kg

DRUGS (21)
  1. ZAROXOLYN [Concomitant]
     Dosage: UNK
     Dates: start: 20040101
  2. DIOVAN [Concomitant]
     Dosage: 80 MG, BID
  3. LEVOPHED [Concomitant]
     Dosage: UNK
     Dates: start: 20040930
  4. GLUCOPHAGE [Concomitant]
     Dosage: 1 G, BID
  5. GLYBURIDE [Concomitant]
     Dosage: 5 MG, BID
  6. LIDOCAINE [Concomitant]
     Dosage: 100
     Dates: start: 20040930
  7. CEFAZOLIN [Concomitant]
     Dosage: 2 G, UNK
     Route: 042
     Dates: start: 20040930
  8. NITROGLYCERIN [Concomitant]
     Dosage: UNK
     Dates: start: 20040930
  9. REGULAR INSULIN [Concomitant]
     Dosage: 10 U, UNK
     Route: 042
     Dates: start: 20040930
  10. NORVASC [Concomitant]
     Dosage: UNK
     Dates: start: 20040101
  11. TRASYLOL [Suspect]
     Indication: CORONARY ARTERY BYPASS
     Dosage: UNK
     Route: 042
     Dates: start: 20040930
  12. PROTAMINE SULFATE [Concomitant]
     Dosage: 500 MG, UNK
     Route: 042
     Dates: start: 20040930
  13. METFORMIN HCL [Concomitant]
     Dosage: UNK
     Dates: start: 20040101
  14. LASIX [Concomitant]
     Dosage: 40 MG, QD
     Dates: start: 20040101
  15. HEPARIN [Concomitant]
     Dosage: 27000 U, UNK
     Route: 042
     Dates: start: 20040930, end: 20040930
  16. ALTACE [Concomitant]
     Dosage: UNK
     Dates: start: 20030101
  17. LISINOPRIL [Concomitant]
     Dosage: UNK
     Dates: start: 20040101
  18. COREG [Concomitant]
     Dosage: 6.25 MG, BID
  19. HEPARIN [Concomitant]
     Dosage: 30000 U, UNK
     Dates: start: 20040930
  20. ATRACURIUM BESYLATE [Concomitant]
     Dosage: 80
     Route: 042
     Dates: start: 20040930
  21. VERSED [Concomitant]
     Dosage: 4 MG, UNK
     Route: 042
     Dates: start: 20040930

REACTIONS (11)
  - MULTI-ORGAN FAILURE [None]
  - RENAL INJURY [None]
  - DEPRESSION [None]
  - FEAR [None]
  - DISABILITY [None]
  - ANHEDONIA [None]
  - RENAL FAILURE [None]
  - INJURY [None]
  - ANXIETY [None]
  - PAIN [None]
  - UNEVALUABLE EVENT [None]
